FAERS Safety Report 13307773 (Version 1)
Quarter: 2017Q1

REPORT INFORMATION
  Report Type: Report from Study
  Country: None (occurrence: US)
  Receive Date: 20170308
  Receipt Date: 20170308
  Transmission Date: 20170428
  Serious: Yes (Other)
  Sender: FDA-Public Use
  Company Number: US-ABBVIE-17K-163-1891935-00

PATIENT
  Sex: Female

DRUGS (1)
  1. HUMIRA [Suspect]
     Active Substance: ADALIMUMAB
     Indication: RHEUMATOID ARTHRITIS
     Route: 058

REACTIONS (6)
  - Diverticulum [Unknown]
  - Abdominal hernia [Unknown]
  - Erosive oesophagitis [Unknown]
  - Abdominal pain upper [Unknown]
  - Gastritis erosive [Unknown]
  - Large intestine polyp [Unknown]
